FAERS Safety Report 8439380-9 (Version None)
Quarter: 2012Q2

REPORT INFORMATION
  Report Type: 
  Country: None (occurrence: None)
  Receive Date: 20120615
  Receipt Date: 20120613
  Transmission Date: 20120825
  Serious: Yes (Other)
  Sender: FDA-Public Use
  Company Number: PHEH2011US00467

PATIENT
  Sex: Female

DRUGS (7)
  1. ZOMETA [Suspect]
     Dosage: 4 MG, QMO
  2. CELEXA [Concomitant]
  3. VICODIN [Concomitant]
  4. PRAVASTATIN [Concomitant]
  5. OXYCONTIN [Concomitant]
  6. OXYCODONE HCL [Concomitant]
  7. METFORMIN HCL [Concomitant]

REACTIONS (44)
  - PHYSICAL DISABILITY [None]
  - HAEMORRHOIDS [None]
  - DYSPNOEA [None]
  - MULTIPLE MYELOMA [None]
  - OVARIAN CYST [None]
  - ASPIRATION BONE MARROW [None]
  - HYPOKALAEMIA [None]
  - THROMBOCYTOPENIA [None]
  - INFECTION [None]
  - EMOTIONAL DISTRESS [None]
  - OSTEOARTHRITIS [None]
  - TYPE 2 DIABETES MELLITUS [None]
  - MUCOSAL INFLAMMATION [None]
  - OSTEONECROSIS OF JAW [None]
  - HUMERUS FRACTURE [None]
  - MYOCARDIAL INFARCTION [None]
  - HYPERLIPIDAEMIA [None]
  - IRON DEFICIENCY ANAEMIA [None]
  - DEFORMITY [None]
  - ANXIETY [None]
  - RHINITIS ALLERGIC [None]
  - BARTHOLIN'S CYST [None]
  - PLEURAL EFFUSION [None]
  - BRONCHITIS [None]
  - UPPER RESPIRATORY TRACT INFECTION [None]
  - GASTROOESOPHAGEAL REFLUX DISEASE [None]
  - INJURY [None]
  - RENAL CYST [None]
  - UPPER LIMB FRACTURE [None]
  - HIATUS HERNIA [None]
  - PAIN [None]
  - RENAL FAILURE ACUTE [None]
  - GASTRIC CANCER [None]
  - DIVERTICULUM [None]
  - OSTEOMYELITIS [None]
  - CHRONIC SINUSITIS [None]
  - BACTERAEMIA [None]
  - CROHN'S DISEASE [None]
  - SPINAL COMPRESSION FRACTURE [None]
  - BONE LESION [None]
  - HYPERTENSION [None]
  - NEUTROPENIA [None]
  - HEPATITIS [None]
  - COLITIS [None]
